FAERS Safety Report 8602647-5 (Version None)
Quarter: 2012Q3

REPORT INFORMATION
  Report Type: 
  Country: None (occurrence: None)
  Receive Date: 20120817
  Receipt Date: 19950925
  Transmission Date: 20120928
  Serious: Yes (Hospitalization)
  Sender: FDA-Public Use
  Company Number: US-ROCHE-1101297

PATIENT
  Sex: Female

DRUGS (6)
  1. HEPARIN [Concomitant]
  2. NITROGLYCERINE DRIP [Concomitant]
     Dosage: DOSE INCREASED 9 ML/HR (15 MCG/MIN)
  3. MORPHINE [Concomitant]
  4. NITROGLYCERINE DRIP [Concomitant]
     Dosage: DOSE INCREASED 6 ML/HR (20MCG/MIN)
  5. ACTIVASE [Suspect]
     Indication: ACUTE MYOCARDIAL INFARCTION
  6. NITROGLYCERINE DRIP [Concomitant]
     Dosage: 3 ML/HR (10 MCG/MIN)

REACTIONS (1)
  - PAIN [None]
